FAERS Safety Report 19519790 (Version 2)
Quarter: 2021Q3

REPORT INFORMATION
  Report Type: Report from Study
  Country: None (occurrence: GB)
  Receive Date: 20210712
  Receipt Date: 20210720
  Transmission Date: 20211014
  Serious: Yes (Hospitalization)
  Sender: FDA-Public Use
  Company Number: GB-ABBVIE-21K-167-3984153-00

PATIENT
  Age: 59 Year
  Sex: Male

DRUGS (2)
  1. DUODOPA [Suspect]
     Active Substance: CARBIDOPA\LEVODOPA
     Indication: PARKINSON^S DISEASE
     Dosage: CONTINOUS DOSE: 3.7MLS/HR EXTRA DOSE:2.3MLS, MORNING DOSE 9,3MLS
     Route: 050
  2. DUODOPA [Suspect]
     Active Substance: CARBIDOPA\LEVODOPA

REACTIONS (6)
  - Anxiety [Unknown]
  - Confusional state [Not Recovered/Not Resolved]
  - Paranoia [Unknown]
  - Blood sodium decreased [Unknown]
  - Delirium [Unknown]
  - Mental disorder [Unknown]

NARRATIVE: CASE EVENT DATE: 2021
